FAERS Safety Report 18024460 (Version 1)
Quarter: 2020Q3

REPORT INFORMATION
  Report Type: Spontaneous
  Country: US (occurrence: US)
  Receive Date: 20200714
  Receipt Date: 20200714
  Transmission Date: 20201103
  Serious: No
  Sender: FDA-Public Use
  Company Number: US-SHIRE-US202022511

PATIENT
  Sex: Female
  Weight: 79.37 kg

DRUGS (2)
  1. GAMMAGARD S/D [Suspect]
     Active Substance: HUMAN IMMUNOGLOBULIN G
     Indication: ENCEPHALITIS AUTOIMMUNE
     Dosage: 35 GRAM, 1X/2WKS
     Route: 065
  2. GAMMAGARD S/D [Suspect]
     Active Substance: HUMAN IMMUNOGLOBULIN G
     Indication: SMALL FIBRE NEUROPATHY

REACTIONS (5)
  - Product storage error [Unknown]
  - Migraine [Unknown]
  - Weight increased [Unknown]
  - Intentional product use issue [Unknown]
  - Migraine without aura [Unknown]
